FAERS Safety Report 7877752-1 (Version None)
Quarter: 2011Q4

REPORT INFORMATION
  Report Type: 
  Country: None (occurrence: None)
  Receive Date: 20111031
  Receipt Date: 20111031
  Transmission Date: 20120403
  Serious: Yes (Other)
  Sender: FDA-Public Use
  Company Number: None

PATIENT
  Age: 41 Year
  Sex: Female
  Weight: 58.967 kg

DRUGS (1)
  1. VENLAFAXINE HCL EXTENDED-RELEASE [Suspect]
     Indication: BIPOLAR II DISORDER
     Dosage: ONE 37.5 MG CAPSULE
     Route: 048

REACTIONS (11)
  - CRYING [None]
  - DRUG WITHDRAWAL SYNDROME [None]
  - ASTHENIA [None]
  - LETHARGY [None]
  - PRODUCT SUBSTITUTION ISSUE [None]
  - ANXIETY [None]
  - DEPRESSION [None]
  - ABNORMAL FAECES [None]
  - PRODUCT QUALITY ISSUE [None]
  - HEADACHE [None]
  - AGGRESSION [None]
